FAERS Safety Report 12262618 (Version 1)
Quarter: 2016Q2

REPORT INFORMATION
  Report Type: Spontaneous
  Country: US (occurrence: US)
  Receive Date: 20160413
  Receipt Date: 20160413
  Transmission Date: 20160815
  Serious: No
  Sender: FDA-Public Use
  Company Number: US-BAUSCH-BL-2015-018175

PATIENT
  Sex: Female

DRUGS (1)
  1. ARESTIN [Suspect]
     Active Substance: MINOCYCLINE HYDROCHLORIDE
     Indication: PRODUCT USED FOR UNKNOWN INDICATION
     Dates: start: 20150629, end: 20150629

REACTIONS (4)
  - Abdominal discomfort [Recovered/Resolved]
  - Lymphadenopathy [Recovered/Resolved]
  - Local swelling [Recovered/Resolved]
  - Throat irritation [Recovered/Resolved]
